FAERS Safety Report 24658130 (Version 1)
Quarter: 2024Q4

REPORT INFORMATION
  Report Type: Spontaneous
  Country: GB (occurrence: GB)
  Receive Date: 20241125
  Receipt Date: 20241125
  Transmission Date: 20250115
  Serious: Yes (Death, Hospitalization, Other)
  Sender: ADVANZ PHARMA
  Company Number: GB-PHARMVIT-4556-3352-ER24-RN1227

PATIENT

DRUGS (1)
  1. PREDNISOLONE [Suspect]
     Active Substance: PREDNISOLONE
     Dosage: 40 MG

REACTIONS (3)
  - End stage renal disease [Fatal]
  - Mycobacterium chelonae infection [Recovered/Resolved]
  - Immunosuppression [Recovered/Resolved]
